FAERS Safety Report 16089816 (Version 1)
Quarter: 2019Q1

REPORT INFORMATION
  Report Type: Spontaneous
  Country: CN (occurrence: CN)
  Receive Date: 20190319
  Receipt Date: 20190319
  Transmission Date: 20190418
  Serious: Yes (Hospitalization)
  Sender: FDA-Public Use
  Company Number: CN-PFIZER INC-2019112637

PATIENT
  Age: 69 Year
  Sex: Female

DRUGS (2)
  1. CICLOSPORIN [Concomitant]
     Active Substance: CYCLOSPORINE
     Dosage: UNK
  2. MEDROL [Suspect]
     Active Substance: METHYLPREDNISOLONE
     Indication: NEPHROPATHY
     Dosage: 1 DF, 1X/DAY

REACTIONS (3)
  - Pulmonary mycosis [Recovered/Resolved]
  - White blood cell count decreased [Recovered/Resolved]
  - Weight decreased [Not Recovered/Not Resolved]
